FAERS Safety Report 11838875 (Version 7)
Quarter: 2016Q2

REPORT INFORMATION
  Report Type: Spontaneous
  Country: US (occurrence: US)
  Receive Date: 20151215
  Receipt Date: 20160412
  Transmission Date: 20160815
  Serious: Yes (Hospitalization, Disabling, Other)
  Sender: FDA-Public Use
  Company Number: US-GILEAD-2015-0187568

PATIENT
  Age: 77 Year
  Sex: Female
  Weight: 61.69 kg

DRUGS (25)
  1. RANEXA [Suspect]
     Active Substance: RANOLAZINE
     Indication: ARTERIAL DISORDER
     Dosage: 1000 MG, BID
     Route: 048
     Dates: start: 201512
  2. FUROSEMIDE. [Suspect]
     Active Substance: FUROSEMIDE
     Dosage: 80 MG, BID
  3. PRAVASTATIN [Concomitant]
     Active Substance: PRAVASTATIN\PRAVASTATIN SODIUM
  4. RANEXA [Suspect]
     Active Substance: RANOLAZINE
     Indication: PULMONARY ARTERY THERAPEUTIC PROCEDURE
     Dosage: 1000 MG, QD
     Route: 048
     Dates: start: 201505
  5. FUROSEMIDE. [Suspect]
     Active Substance: FUROSEMIDE
     Dosage: 80 MG, WITH ADDITIONAL 40 AS NEEDED
     Route: 065
     Dates: start: 2014
  6. AMLODIPINE [Concomitant]
     Active Substance: AMLODIPINE BESYLATE
  7. HYDROCODONE [Concomitant]
     Active Substance: HYDROCODONE
     Indication: PAIN
  8. GABAPENTIN. [Concomitant]
     Active Substance: GABAPENTIN
     Indication: NEURALGIA
  9. CLONAZEPAM. [Concomitant]
     Active Substance: CLONAZEPAM
     Indication: NERVOUSNESS
  10. BACLOFEN. [Concomitant]
     Active Substance: BACLOFEN
  11. REVATIO [Suspect]
     Active Substance: SILDENAFIL CITRATE
     Indication: BLOOD DISORDER
  12. SUCRALFATE. [Concomitant]
     Active Substance: SUCRALFATE
  13. PROZAC [Concomitant]
     Active Substance: FLUOXETINE HYDROCHLORIDE
     Indication: DEPRESSION
     Dosage: UNK
     Dates: start: 20160303
  14. FUROSEMIDE. [Suspect]
     Active Substance: FUROSEMIDE
     Indication: FLUID RETENTION
     Dosage: 40 MG, UNK
     Route: 065
     Dates: start: 2011, end: 2012
  15. FERROUS SULFATE. [Concomitant]
     Active Substance: FERROUS SULFATE
  16. CALCIUM W/VITAMINS NOS [Concomitant]
  17. OMEPRAZOLE. [Concomitant]
     Active Substance: OMEPRAZOLE
     Indication: GASTROOESOPHAGEAL REFLUX DISEASE
  18. CLOPIDOGREL [Concomitant]
     Active Substance: CLOPIDOGREL BISULFATE
     Indication: ANTICOAGULANT THERAPY
  19. RANEXA [Suspect]
     Active Substance: RANOLAZINE
     Indication: CORONARY ARTERY OCCLUSION
     Dosage: 1000 MG, BID
     Route: 048
     Dates: start: 201410, end: 201505
  20. FUROSEMIDE. [Suspect]
     Active Substance: FUROSEMIDE
     Dosage: 80 MG, UNK
     Route: 065
     Dates: start: 2012, end: 2014
  21. PRAMIPEXOLE. [Concomitant]
     Active Substance: PRAMIPEXOLE
  22. POTASSIUM [Concomitant]
     Active Substance: POTASSIUM
  23. TRAZODONE [Concomitant]
     Active Substance: TRAZODONE HYDROCHLORIDE
  24. REVATIO [Suspect]
     Active Substance: SILDENAFIL CITRATE
     Indication: PULMONARY HYPERTENSION
     Dosage: 20 MG, TID
     Route: 048
     Dates: start: 2005
  25. PILOCARPINE. [Concomitant]
     Active Substance: PILOCARPINE

REACTIONS (21)
  - Pelvic fracture [Not Recovered/Not Resolved]
  - Back pain [Not Recovered/Not Resolved]
  - Fall [Unknown]
  - Red blood cell count decreased [Unknown]
  - Exercise tolerance decreased [Unknown]
  - Hiatus hernia [Not Recovered/Not Resolved]
  - Intentional product use issue [Recovered/Resolved]
  - Oedema [Not Recovered/Not Resolved]
  - Weight increased [Unknown]
  - Renal impairment [Unknown]
  - Dyspnoea [Unknown]
  - Dyspnoea [Not Recovered/Not Resolved]
  - Pain [Unknown]
  - Gait disturbance [Not Recovered/Not Resolved]
  - Intervertebral disc injury [Recovered/Resolved]
  - Fluid retention [Recovered/Resolved]
  - Drug ineffective [Not Recovered/Not Resolved]
  - Off label use [Not Recovered/Not Resolved]
  - Oedema [Recovered/Resolved]
  - Aneurysm [Recovered/Resolved]
  - Hypoacusis [Not Recovered/Not Resolved]

NARRATIVE: CASE EVENT DATE: 2014
